FAERS Safety Report 24565096 (Version 1)
Quarter: 2024Q4

REPORT INFORMATION
  Report Type: Spontaneous
  Country: GB (occurrence: GB)
  Receive Date: 20241030
  Receipt Date: 20241030
  Transmission Date: 20250114
  Serious: Yes (Life-Threatening, Other)
  Sender: INSUD PHARMA
  Company Number: None

PATIENT
  Age: 54 Year
  Sex: Male
  Weight: 123 kg

DRUGS (1)
  1. OMEPRAZOLE [Suspect]
     Active Substance: OMEPRAZOLE
     Indication: Regurgitation
     Dosage: 2 TABLETS PER DAY
     Dates: start: 20000101, end: 20240301

REACTIONS (1)
  - Suck-swallow breathing coordination disturbance [Not Recovered/Not Resolved]

NARRATIVE: CASE EVENT DATE: 20200101
